FAERS Safety Report 8934892 (Version 1)
Quarter: 2012Q4

REPORT INFORMATION
  Report Type: 
  Country: US (occurrence: US)
  Receive Date: 20121129
  Receipt Date: 20121129
  Transmission Date: 20130627
  Serious: No
  Sender: FDA-Public Use
  Company Number: US-TARO-2011P1015016

PATIENT
  Age: 79 Year
  Sex: Female
  Weight: 48.99 kg

DRUGS (7)
  1. CARBAMAZEPINE [Suspect]
     Indication: TRIGEMINAL NEURALGIA
     Dates: start: 2007, end: 2010
  2. CARBAMAZEPINE [Suspect]
     Indication: TRIGEMINAL NEURALGIA
     Route: 048
     Dates: start: 2010
  3. NADOLOL [Concomitant]
     Route: 048
  4. ASA [Concomitant]
     Route: 048
  5. VITAMIN C [Concomitant]
  6. VITAMIN D [Concomitant]
  7. MULTIVITAMIN [Concomitant]

REACTIONS (1)
  - Platelet count decreased [Not Recovered/Not Resolved]
